FAERS Safety Report 9159296 (Version 1)
Quarter: 2013Q1

REPORT INFORMATION
  Report Type: Spontaneous
  Country: US (occurrence: None)
  Receive Date: 20130312
  Receipt Date: 20130312
  Transmission Date: 20140127
  Serious: Yes (Hospitalization)
  Sender: FDA-Public Use
  Company Number: None

PATIENT
  Age: 49 Year
  Sex: Male
  Weight: 91 kg

DRUGS (9)
  1. TRIMETHOBENZAMIDE [Suspect]
     Indication: NAUSEA
     Dosage: PRIOR TO ADMISSION
  2. LORAZEPAM [Suspect]
     Indication: ANXIETY
     Dosage: PRIOR TO ADMISSION
  3. HYDROCODONE/ACETAMINOPHEN 10/325 [Concomitant]
  4. HCTZ [Concomitant]
  5. LISINOPRIL [Concomitant]
  6. ATENOLOL [Concomitant]
  7. ALBUTEROL INHALER [Concomitant]
  8. IBUPROFEN [Concomitant]
  9. DIAZEPAM [Concomitant]

REACTIONS (5)
  - Angioedema [None]
  - Speech disorder [None]
  - Throat tightness [None]
  - Dysphagia [None]
  - Wheezing [None]
